FAERS Safety Report 13119746 (Version 2)
Quarter: 2017Q1

REPORT INFORMATION
  Report Type: Spontaneous
  Country: JP (occurrence: JP)
  Receive Date: 20170117
  Receipt Date: 20170303
  Transmission Date: 20170428
  Serious: Yes (Other)
  Sender: FDA-Public Use
  Company Number: JP-CIPLA LTD.-2017JP00539

PATIENT

DRUGS (11)
  1. LAMOTRIGINE. [Suspect]
     Active Substance: LAMOTRIGINE
     Indication: INFANTILE SPASMS
     Dosage: UNK
     Route: 065
  2. NITRAZEPAM [Suspect]
     Active Substance: NITRAZEPAM
     Indication: INFANTILE SPASMS
     Dosage: UNK
     Route: 065
  3. VALPROIC ACID. [Suspect]
     Active Substance: VALPROIC ACID
     Indication: INFANTILE SPASMS
     Dosage: UNK
     Route: 065
  4. QUINIDINE [Suspect]
     Active Substance: QUINIDINE
     Dosage: UNK, TITRATED UPWARDS AT A PACE OF 2 MG/KG DAILY
     Route: 065
  5. QUINIDINE [Suspect]
     Active Substance: QUINIDINE
     Dosage: 60 MG/KG/DAY
     Route: 065
  6. TOPIRAMATE. [Suspect]
     Active Substance: TOPIRAMATE
     Indication: INFANTILE SPASMS
     Dosage: UNK
     Route: 065
  7. ZONISAMIDE. [Suspect]
     Active Substance: ZONISAMIDE
     Indication: INFANTILE SPASMS
     Dosage: UNK
     Route: 065
  8. VITAMIN B6 [Suspect]
     Active Substance: PYRIDOXINE HYDROCHLORIDE
     Indication: INFANTILE SPASMS
     Dosage: UNK
     Route: 065
  9. QUINIDINE [Suspect]
     Active Substance: QUINIDINE
     Indication: INFANTILE SPASMS
     Dosage: 2 MG/KG/DAY
     Route: 065
  10. LAMOTRIGINE. [Suspect]
     Active Substance: LAMOTRIGINE
     Dosage: 3 MG/KG/DAY (CONCENTRATION: 4.9 UMG/ML)
     Route: 065
  11. VALPROIC ACID. [Suspect]
     Active Substance: VALPROIC ACID
     Dosage: 40 MG/KG/DAY (CONCENTRATION: 67.9 UMG/ML)
     Route: 065

REACTIONS (3)
  - Disease recurrence [Unknown]
  - Drug ineffective [Unknown]
  - Diarrhoea [Recovered/Resolved]
